FAERS Safety Report 26154255 (Version 1)
Quarter: 2025Q4

REPORT INFORMATION
  Report Type: Spontaneous
  Country: BR (occurrence: BR)
  Receive Date: 20251215
  Receipt Date: 20251215
  Transmission Date: 20260118
  Serious: Yes (Death)
  Sender: CHEPLAPHARM
  Company Number: BR-BIOPAS-2025-BR-000268

PATIENT
  Sex: Male
  Weight: 60 kg

DRUGS (1)
  1. CAPECITABINE [Suspect]
     Active Substance: CAPECITABINE
     Indication: Hepatic cancer
     Dosage: 8 TABLETS PER DAY IN 14-DAY CYCLES?DAILY DOSE: 8 DOSAGE FORM
     Dates: start: 20250821

REACTIONS (5)
  - Respiratory failure [Fatal]
  - Bone marrow failure [Fatal]
  - Condition aggravated [Fatal]
  - Toxicity to various agents [Fatal]
  - Off label use [Unknown]
